FAERS Safety Report 5270683-5 (Version None)
Quarter: 2007Q1

REPORT INFORMATION
  Report Type: 
  Country: None (occurrence: None)
  Receive Date: 20070321
  Receipt Date: 20070314
  Transmission Date: 20070707
  Serious: Yes (Hospitalization)
  Sender: FDA-Public Use
  Company Number: US-ELI_LILLY_AND_COMPANY-US_0502112845

PATIENT
  Age: 37 Year
  Sex: Female
  Weight: 80.725 kg

DRUGS (9)
  1. ZOLOFT [Concomitant]
     Dates: start: 20000101
  2. LUNELLE [Concomitant]
     Indication: ORAL CONTRACEPTION
     Dates: start: 19980101
  3. GLUCOTROL [Concomitant]
     Dates: start: 19980101
  4. METFORMIN HCL [Concomitant]
     Dates: start: 19980101
  5. REZULIN [Concomitant]
     Dates: start: 19980101
  6. ZYPREXA [Suspect]
     Indication: SCHIZOPHRENIA
     Dosage: 10 MG, UNK
     Dates: start: 20000803, end: 20030420
  7. ZYPREXA [Suspect]
     Dosage: 15 MG, UNK
     Dates: start: 20041204, end: 20060207
  8. ZYPREXA [Suspect]
     Dosage: 10 MG, UNK
     Dates: start: 20060111, end: 20060607
  9. ZYPREXA [Suspect]
     Dosage: 10 MG, UNK
     Dates: start: 20060809, end: 20060909

REACTIONS (5)
  - DIABETES MELLITUS [None]
  - DRUG EXPOSURE DURING PREGNANCY [None]
  - GESTATIONAL DIABETES [None]
  - HYPERGLYCAEMIA [None]
  - TOE AMPUTATION [None]
